FAERS Safety Report 11945282 (Version 3)
Quarter: 2016Q3

REPORT INFORMATION
  Report Type: Spontaneous
  Country: US (occurrence: US)
  Receive Date: 20160125
  Receipt Date: 20160805
  Transmission Date: 20161109
  Serious: Yes (Other)
  Sender: FDA-Public Use
  Company Number: US-BAYER-2016-014092

PATIENT
  Age: 63 Year
  Sex: Male

DRUGS (4)
  1. AMBRISENTAN [Suspect]
     Active Substance: AMBRISENTAN
     Indication: PULMONARY HYPERTENSION
  2. AMBRISENTAN [Suspect]
     Active Substance: AMBRISENTAN
     Indication: PULMONARY HYPERTENSION
     Dosage: 10 MG, QD
     Dates: start: 20160701
  3. ADEMPAS [Suspect]
     Active Substance: RIOCIGUAT
     Indication: PRODUCT USED FOR UNKNOWN INDICATION
     Dosage: UNK
     Route: 065
  4. APIXABAN [Suspect]
     Active Substance: APIXABAN
     Indication: PRODUCT USED FOR UNKNOWN INDICATION
     Dosage: UNK

REACTIONS (16)
  - Decreased activity [None]
  - Insomnia [None]
  - Muscle atrophy [Not Recovered/Not Resolved]
  - Rales [Not Recovered/Not Resolved]
  - Oedema peripheral [Not Recovered/Not Resolved]
  - Glycosylated haemoglobin increased [None]
  - Weight increased [None]
  - Dyspnoea exertional [Not Recovered/Not Resolved]
  - Fatigue [Not Recovered/Not Resolved]
  - Dyspnoea at rest [None]
  - Depression [None]
  - Chest pain [None]
  - Nasal congestion [Not Recovered/Not Resolved]
  - Oxygen saturation decreased [None]
  - Cough [None]
  - Muscular weakness [Not Recovered/Not Resolved]
